FAERS Safety Report 9008860 (Version 1)
Quarter: 2013Q1

REPORT INFORMATION
  Report Type: Spontaneous
  Country: US (occurrence: US)
  Receive Date: 20130111
  Receipt Date: 20130111
  Transmission Date: 20140127
  Serious: Yes (Other)
  Sender: FDA-Public Use
  Company Number: US-009507513-1301USA002853

PATIENT
  Sex: Female

DRUGS (2)
  1. SINGULAIR [Suspect]
     Indication: ASTHMA
  2. ADVAIR [Suspect]
     Dosage: 100/50
     Route: 055

REACTIONS (2)
  - Influenza [Unknown]
  - Adverse event [Unknown]
